FAERS Safety Report 4743629-3 (Version None)
Quarter: 2005Q3

REPORT INFORMATION
  Report Type: 
  Country: None (occurrence: None)
  Receive Date: 20050809
  Receipt Date: 20050801
  Transmission Date: 20060218
  Serious: Yes (Death, Other)
  Sender: FDA-Public Use
  Company Number: A-CH2005-10265

PATIENT
  Age: 74 Year
  Sex: Male
  Weight: 83 kg

DRUGS (6)
  1. TRACLEER [Suspect]
     Indication: CHRONIC OBSTRUCTIVE PULMONARY DISEASE
     Dosage: SEE IMAGE, ORAL
     Route: 048
     Dates: start: 20030508, end: 20030605
  2. TRACLEER [Suspect]
     Indication: CHRONIC OBSTRUCTIVE PULMONARY DISEASE
     Dosage: SEE IMAGE, ORAL
     Route: 048
     Dates: start: 20030606, end: 20050615
  3. SYMBICORT [Concomitant]
  4. LOVENOX [Concomitant]
  5. SIFROL (PRAMIPEXOLE DIHYDROCHLORIDE) [Concomitant]
  6. RESPICUR (THEOPHYLLINE) [Concomitant]

REACTIONS (4)
  - ALANINE AMINOTRANSFERASE INCREASED [None]
  - BLOOD BILIRUBIN INCREASED [None]
  - RESPIRATORY FAILURE [None]
  - RIGHT VENTRICULAR FAILURE [None]
